FAERS Safety Report 8139603-X (Version None)
Quarter: 2012Q1

REPORT INFORMATION
  Report Type: 
  Country: None (occurrence: None)
  Receive Date: 20120215
  Receipt Date: 20120202
  Transmission Date: 20120608
  Serious: Yes (Other)
  Sender: FDA-Public Use
  Company Number: PHHY2012FI005507

PATIENT
  Age: 58 Year
  Sex: Male

DRUGS (2)
  1. CYCLOPHOSPHAMIDE [Concomitant]
     Indication: LYMPHOMA
  2. CLOZAPINE [Suspect]
     Dosage: 300 MG, DAILY
     Route: 048

REACTIONS (2)
  - NEUTROPHIL COUNT DECREASED [None]
  - FULL BLOOD COUNT DECREASED [None]
